FAERS Safety Report 5237713-8 (Version None)
Quarter: 2007Q1

REPORT INFORMATION
  Report Type: 
  Country: None (occurrence: None)
  Receive Date: 20070214
  Receipt Date: 20070208
  Transmission Date: 20070707
  Serious: Yes (Death)
  Sender: FDA-Public Use
  Company Number: 2007AP00526

PATIENT
  Age: 24768 Day
  Sex: Male
  Weight: 40.5 kg

DRUGS (4)
  1. IRESSA [Suspect]
     Indication: SQUAMOUS CELL CARCINOMA
     Route: 048
     Dates: start: 20061113
  2. CISPLATIN [Suspect]
     Indication: SQUAMOUS CELL CARCINOMA
     Dosage: GIVEN ON DAYS 1-4 OF WEEK 1,4 +7 OF RADIOTHERAPY
     Route: 042
     Dates: start: 20061205
  3. RADIOTHERAPY [Suspect]
     Indication: SQUAMOUS CELL CARCINOMA
     Dosage: GIVEN OVER 7 WEEKS (70 GY)
     Dates: start: 20061205
  4. CALAMINE [Concomitant]
     Indication: PRURITUS
     Route: 062
     Dates: start: 20061127

REACTIONS (1)
  - MYOCARDIAL ISCHAEMIA [None]
